FAERS Safety Report 12969715 (Version 1)
Quarter: 2016Q4

REPORT INFORMATION
  Report Type: Spontaneous
  Country: CN (occurrence: CN)
  Receive Date: 20161123
  Receipt Date: 20161123
  Transmission Date: 20170207
  Serious: Yes (Other)
  Sender: FDA-Public Use
  Company Number: CN-ELI_LILLY_AND_COMPANY-CN201611006024

PATIENT
  Age: 75 Year
  Sex: Female
  Weight: 66.5 kg

DRUGS (2)
  1. HUMULIN 70/30 [Suspect]
     Active Substance: INSULIN HUMAN
     Indication: DIABETES MELLITUS
     Dosage: 20 U, BID
     Route: 058
     Dates: start: 2006
  2. GLUCOBAY [Concomitant]
     Active Substance: ACARBOSE
     Dosage: UNK, UNKNOWN
     Route: 065

REACTIONS (2)
  - Cerebral thrombosis [Unknown]
  - Accidental underdose [Unknown]

NARRATIVE: CASE EVENT DATE: 2009
